FAERS Safety Report 5363674-7 (Version None)
Quarter: 2007Q2

REPORT INFORMATION
  Report Type: 
  Country: None (occurrence: None)
  Receive Date: 20070618
  Receipt Date: 20070618
  Transmission Date: 20071010
  Serious: Yes (Disabling, Other)
  Sender: FDA-Public Use
  Company Number: None

PATIENT
  Age: 35 Year
  Sex: Female
  Weight: 94.8018 kg

DRUGS (1)
  1. MIRENA [Suspect]
     Indication: CONTRACEPTION
     Dosage: 1 INTRA-UTERI
     Route: 015
     Dates: start: 20070424, end: 20070615

REACTIONS (27)
  - ACNE [None]
  - ANXIETY [None]
  - ARTHRALGIA [None]
  - BACK PAIN [None]
  - BREAST PAIN [None]
  - CONDITION AGGRAVATED [None]
  - DEPRESSION [None]
  - DIZZINESS [None]
  - FATIGUE [None]
  - FEELING ABNORMAL [None]
  - HOT FLUSH [None]
  - HUNGER [None]
  - INFLUENZA [None]
  - INSOMNIA [None]
  - MENORRHAGIA [None]
  - MIGRAINE [None]
  - MYALGIA [None]
  - NAUSEA [None]
  - NIGHT SWEATS [None]
  - NIPPLE PAIN [None]
  - PANIC ATTACK [None]
  - PAROSMIA [None]
  - PELVIC PAIN [None]
  - RHINORRHOEA [None]
  - THIRST [None]
  - VERTIGO [None]
  - WEIGHT INCREASED [None]
